FAERS Safety Report 25862287 (Version 1)
Quarter: 2025Q3

REPORT INFORMATION
  Report Type: Other
  Country: IQ (occurrence: IQ)
  Receive Date: 20250930
  Receipt Date: 20250930
  Transmission Date: 20251020
  Serious: Yes (Hospitalization, Other)
  Sender: BIONPHARMA INC.
  Company Number: IQ-Bion-015269

PATIENT
  Age: 28 Year
  Sex: Male

DRUGS (1)
  1. IBUPROFEN [Suspect]
     Active Substance: IBUPROFEN
     Indication: Arthralgia

REACTIONS (5)
  - Acute myocardial infarction [Recovering/Resolving]
  - Cardiac aneurysm [Recovering/Resolving]
  - Abdominal discomfort [Unknown]
  - Drug abuse [Unknown]
  - Inflammation masked [Unknown]
